FAERS Safety Report 15824889 (Version 2)
Quarter: 2019Q1

REPORT INFORMATION
  Report Type: Report from Study
  Country: US (occurrence: US)
  Receive Date: 20190115
  Receipt Date: 20190206
  Transmission Date: 20190417
  Serious: Yes (Hospitalization, Other)
  Sender: FDA-Public Use
  Company Number: US-AMGEN INC.-USASP2019003617

PATIENT
  Age: 58 Year
  Sex: Male

DRUGS (7)
  1. AIMOVIG [Suspect]
     Active Substance: ERENUMAB-AOOE
     Dosage: 70 MG, Q2WK
     Route: 065
     Dates: start: 2018
  2. NORCO [Concomitant]
     Active Substance: ACETAMINOPHEN\HYDROCODONE BITARTRATE
     Indication: PAIN
     Dosage: UNK
  3. AIMOVIG [Suspect]
     Active Substance: ERENUMAB-AOOE
     Dosage: 140 MG, QMO
     Route: 065
     Dates: start: 2018, end: 2018
  4. PROZAC [Concomitant]
     Active Substance: FLUOXETINE HYDROCHLORIDE
     Dosage: UNK
  5. AIMOVIG [Suspect]
     Active Substance: ERENUMAB-AOOE
     Dosage: 140 MG QMO AND 70 MG BOOSTER DOSE IN THE MIDDLE OF THE MONTH
     Route: 065
     Dates: start: 201901
  6. AIMOVIG [Suspect]
     Active Substance: ERENUMAB-AOOE
     Indication: MIGRAINE PROPHYLAXIS
     Dosage: 70 MG, QMO
     Route: 065
     Dates: start: 2018, end: 2018
  7. VENLAFAXINE [Concomitant]
     Active Substance: VENLAFAXINE HYDROCHLORIDE
     Dosage: UNK

REACTIONS (7)
  - Injection site pain [Unknown]
  - Wrong technique in product usage process [Unknown]
  - Injection site haemorrhage [Unknown]
  - Device issue [Unknown]
  - Drug effect incomplete [Unknown]
  - Knee arthroplasty [Unknown]
  - Off label use [Unknown]

NARRATIVE: CASE EVENT DATE: 2018
